FAERS Safety Report 23961098 (Version 4)
Quarter: 2024Q4

REPORT INFORMATION
  Report Type: Spontaneous
  Country: US (occurrence: US)
  Receive Date: 20240611
  Receipt Date: 20241227
  Transmission Date: 20250115
  Serious: Yes (Hospitalization, Other)
  Sender: SANOFI AVENTIS
  Company Number: US-SA-SAC20240606000242

PATIENT
  Age: 76 Year
  Sex: Male
  Weight: 117 kg

DRUGS (1)
  1. REZUROCK [Suspect]
     Active Substance: BELUMOSUDIL
     Indication: Chronic graft versus host disease
     Dosage: 200 MG, QD
     Route: 048
     Dates: start: 20220216

REACTIONS (6)
  - Cardiac disorder [Unknown]
  - Lung disorder [Unknown]
  - Diverticulitis [Unknown]
  - Dyspnoea [Unknown]
  - General physical health deterioration [Unknown]
  - Emotional disorder [Unknown]

NARRATIVE: CASE EVENT DATE: 20241220
